FAERS Safety Report 12248777 (Version 2)
Quarter: 2016Q2

REPORT INFORMATION
  Report Type: Spontaneous
  Country: US (occurrence: US)
  Receive Date: 20160408
  Receipt Date: 20160429
  Transmission Date: 20160815
  Serious: Yes (Hospitalization, Other)
  Sender: FDA-Public Use
  Company Number: US-BEH-2016060975

PATIENT
  Age: 53 Year
  Sex: Female
  Weight: 63 kg

DRUGS (26)
  1. OXYGEN. [Concomitant]
     Active Substance: OXYGEN
  2. VENTOLIN [Concomitant]
     Active Substance: ALBUTEROL SULFATE
  3. ALENDRONATE [Concomitant]
     Active Substance: ALENDRONATE SODIUM
  4. CALCIUM [Concomitant]
     Active Substance: CALCIUM
  5. DIPHENHYDRAMINE. [Concomitant]
     Active Substance: DIPHENHYDRAMINE
  6. OPANA [Concomitant]
     Active Substance: OXYMORPHONE HYDROCHLORIDE
  7. EXCEDRIN [Concomitant]
     Active Substance: ACETAMINOPHEN\ASPIRIN\CAFFEINE
  8. LMX [Concomitant]
     Active Substance: LIDOCAINE
  9. ESTRADIOL. [Concomitant]
     Active Substance: ESTRADIOL
  10. NYSTATIN. [Concomitant]
     Active Substance: NYSTATIN
  11. ATIVAN [Concomitant]
     Active Substance: LORAZEPAM
  12. DILTIAZEM [Concomitant]
     Active Substance: DILTIAZEM
  13. IPRATROPIUM [Concomitant]
     Active Substance: IPRATROPIUM
  14. FLUOCINONIDE. [Concomitant]
     Active Substance: FLUOCINONIDE
  15. OMEPRAZOLE. [Concomitant]
     Active Substance: OMEPRAZOLE
  16. PREDNISONE. [Concomitant]
     Active Substance: PREDNISONE
  17. FLUOXETINE [Concomitant]
     Active Substance: FLUOXETINE HYDROCHLORIDE
  18. SYMBICORT [Concomitant]
     Active Substance: BUDESONIDE\FORMOTEROL FUMARATE DIHYDRATE
  19. ZEMAIRA [Suspect]
     Active Substance: .ALPHA.1-PROTEINASE INHIBITOR HUMAN
     Indication: ALPHA-1 ANTI-TRYPSIN DEFICIENCY
     Dosage: START DATE: ??-???-2014
     Route: 042
  20. HEPARIN [Concomitant]
     Active Substance: HEPARIN SODIUM
  21. NORMAL SALINE [Concomitant]
     Active Substance: SODIUM CHLORIDE
  22. SODIUM CHLORIDE. [Concomitant]
     Active Substance: SODIUM CHLORIDE
  23. EPIPEN [Concomitant]
     Active Substance: EPINEPHRINE
  24. SINGULAIR [Concomitant]
     Active Substance: MONTELUKAST SODIUM
  25. LOVASTATIN. [Concomitant]
     Active Substance: LOVASTATIN
  26. TIZANIDINE. [Concomitant]
     Active Substance: TIZANIDINE

REACTIONS (2)
  - Pneumonia staphylococcal [Recovered/Resolved]
  - Chronic obstructive pulmonary disease [Recovered/Resolved]

NARRATIVE: CASE EVENT DATE: 20160303
